FAERS Safety Report 4448888-2 (Version None)
Quarter: 2004Q3

REPORT INFORMATION
  Report Type: 
  Country: None (occurrence: None)
  Receive Date: 20040909
  Receipt Date: 20040831
  Transmission Date: 20050211
  Serious: Yes (Hospitalization)
  Sender: FDA-Public Use
  Company Number: T04-USA-00447-01

PATIENT
  Age: 67 Year
  Sex: Female
  Weight: 60.782 kg

DRUGS (8)
  1. MEMANTINE HCL [Suspect]
     Indication: DEMENTIA ALZHEIMER'S TYPE
     Dosage: 20 MG QD PO
     Route: 048
     Dates: start: 20031015
  2. MEMANTINE HCL [Suspect]
     Indication: DEPRESSION
     Dosage: 20 MG QD PO
     Route: 048
     Dates: start: 20031015
  3. ESCITALOPRAM (UNBLINDED) (ESCITALOPRAM) [Suspect]
     Indication: DEMENTIA ALZHEIMER'S TYPE
     Dosage: 10 MG QD PO
     Route: 048
     Dates: start: 20040106, end: 20040203
  4. ESCITALOPRAM (UNBLINDED) (ESCITALOPRAM) [Suspect]
     Indication: DEPRESSION
     Dosage: 10 MG QD PO
     Route: 048
     Dates: start: 20040106, end: 20040203
  5. ESCITALOPRAM (UNBLINDED) (ESCITALOPRAM) [Suspect]
     Indication: DEMENTIA ALZHEIMER'S TYPE
     Dosage: 10 MG QD PO
     Route: 048
     Dates: start: 20040204
  6. ESCITALOPRAM (UNBLINDED) (ESCITALOPRAM) [Suspect]
     Indication: DEPRESSION
     Dosage: 10 MG QD PO
     Route: 048
     Dates: start: 20040204
  7. VERSED [Suspect]
     Indication: PREMEDICATION
     Dosage: 1 MG ONCE IV
     Route: 042
     Dates: start: 20040205, end: 20040205
  8. LANSOPRAZOLE [Concomitant]

REACTIONS (21)
  - BARRETT'S OESOPHAGUS [None]
  - CEREBRAL ISCHAEMIA [None]
  - CHOKING [None]
  - COUGH [None]
  - DANDY-WALKER SYNDROME [None]
  - DIZZINESS [None]
  - DUODENAL NEOPLASM [None]
  - DUODENAL ULCER [None]
  - DYSPHAGIA [None]
  - GASTROINTESTINAL DISORDER [None]
  - GASTROINTESTINAL OBSTRUCTION [None]
  - GASTROOESOPHAGEAL HETEROTOPIA [None]
  - GASTROOESOPHAGEAL REFLUX DISEASE [None]
  - GRAND MAL CONVULSION [None]
  - HIATUS HERNIA [None]
  - HYPOTHYROIDISM [None]
  - METAPLASIA [None]
  - MUCOSAL INFLAMMATION [None]
  - NAUSEA [None]
  - PEPTIC ULCER [None]
  - VOMITING [None]
